FAERS Safety Report 9230075 (Version 1)
Quarter: 2013Q2

REPORT INFORMATION
  Report Type: Spontaneous
  Country: US (occurrence: US)
  Receive Date: 20130415
  Receipt Date: 20130415
  Transmission Date: 20140414
  Serious: Yes (Other)
  Sender: FDA-Public Use
  Company Number: US-JNJFOC-20130307864

PATIENT
  Age: 73 Year
  Sex: Male
  Weight: 90.27 kg

DRUGS (4)
  1. TYLENOL 3 [Suspect]
     Indication: MIGRAINE
     Route: 065
  2. TYLENOL 3 [Suspect]
     Indication: HEADACHE
     Route: 065
  3. DRISTAN COLD MULTI-SYMPTOM FORMULA [Suspect]
     Indication: MIGRAINE
     Route: 048
  4. DRISTAN COLD MULTI-SYMPTOM FORMULA [Suspect]
     Indication: HEADACHE
     Route: 048

REACTIONS (4)
  - Cerebrovascular accident [Unknown]
  - Adverse drug reaction [Unknown]
  - Drug ineffective [Unknown]
  - Somnolence [Unknown]
